FAERS Safety Report 5719824-3 (Version None)
Quarter: 2008Q2

REPORT INFORMATION
  Report Type: 
  Country: None (occurrence: None)
  Receive Date: 20080428
  Receipt Date: 20080421
  Transmission Date: 20081010
  Serious: Yes (Life-Threatening)
  Sender: FDA-Public Use
  Company Number: US-MERCK-0804USA03591

PATIENT
  Age: 69 Year
  Sex: Male

DRUGS (4)
  1. JANUVIA [Suspect]
     Indication: TYPE 2 DIABETES MELLITUS
     Route: 048
     Dates: start: 20070313, end: 20080101
  2. LISINOPRIL [Concomitant]
     Route: 065
     Dates: end: 20080330
  3. DILANTIN [Concomitant]
     Route: 065
  4. TOPROL-XL [Concomitant]
     Route: 048
     Dates: end: 20080330

REACTIONS (1)
  - HYPERKALAEMIA [None]
